FAERS Safety Report 6680964-6 (Version None)
Quarter: 2010Q2

REPORT INFORMATION
  Report Type: 
  Country: None (occurrence: None)
  Receive Date: 20100414
  Receipt Date: 20100407
  Transmission Date: 20101027
  Serious: Yes (Death, Hospitalization)
  Sender: FDA-Public Use
  Company Number: JP-BAYER-200812197BYL

PATIENT
  Age: 54 Year
  Sex: Male
  Weight: 49 kg

DRUGS (36)
  1. NEXAVAR [Suspect]
     Indication: RENAL CELL CARCINOMA
     Dosage: AS USED: 800 MG  UNIT DOSE: 200 MG
     Route: 048
     Dates: start: 20080616, end: 20080827
  2. PROCHLORPERAZINE [Concomitant]
     Route: 048
     Dates: start: 20080618, end: 20080624
  3. MYSLEE [Concomitant]
     Route: 048
     Dates: start: 20080618
  4. DUROTEP [Concomitant]
     Route: 062
     Dates: start: 20080618, end: 20080710
  5. DUROTEP [Concomitant]
     Route: 062
     Dates: start: 20080723
  6. DUROTEP [Concomitant]
     Route: 062
     Dates: start: 20080711, end: 20080716
  7. DUROTEP [Concomitant]
     Route: 062
     Dates: start: 20080717, end: 20080722
  8. MOHRUS TAPE [Concomitant]
     Indication: BACK PAIN
     Route: 062
     Dates: start: 20080618
  9. DAIOU (RHUBARB) [Concomitant]
     Route: 048
     Dates: start: 20080604
  10. LOXONIN [Concomitant]
     Dosage: TOTAL DAILY DOSE: 180 MG  UNIT DOSE: 60 MG
     Route: 048
     Dates: start: 20080604
  11. MUCOSTA [Concomitant]
     Dosage: TOTAL DAILY DOSE: 300 MG  UNIT DOSE: 100 MG
     Route: 048
     Dates: start: 20080604
  12. PARIET [Concomitant]
     Route: 048
     Dates: start: 20080604
  13. ZOLOFT [Concomitant]
     Route: 048
     Dates: start: 20080604
  14. LAXOBERON [Concomitant]
     Route: 048
     Dates: start: 20080604
  15. ARGAMATE [Concomitant]
     Dosage: TOTAL DAILY DOSE: 75 G  UNIT DOSE: 25 G
     Route: 048
     Dates: start: 20080604
  16. OXINORM [Concomitant]
     Route: 048
     Dates: start: 20080621, end: 20080708
  17. CONIEL [Concomitant]
     Indication: HYPERTENSION
     Dosage: TOTAL DAILY DOSE: 8 MG  UNIT DOSE: 4 MG
     Route: 048
     Dates: start: 20080623
  18. NERIPROCT [Concomitant]
     Route: 054
     Dates: start: 20080626
  19. CANDESARTAN CILEXETIL [Concomitant]
     Indication: HYPERTENSION
     Dosage: TOTAL DAILY DOSE: 8 MG  UNIT DOSE: 8 MG
     Route: 048
     Dates: start: 20080627
  20. PRIMPERAN [Concomitant]
     Dosage: TOTAL DAILY DOSE: 15 MG  UNIT DOSE: 5 MG
     Route: 048
     Dates: start: 20080630
  21. WHITE PETROLATUM [Concomitant]
     Route: 061
     Dates: start: 20080702, end: 20080702
  22. GASMOTIN [Concomitant]
     Dosage: TOTAL DAILY DOSE: 15 MG  UNIT DOSE: 5 MG
     Route: 048
     Dates: start: 20080702
  23. LACTULOSE [Concomitant]
     Route: 048
     Dates: start: 20080702
  24. THYRADIN S [Concomitant]
     Route: 048
     Dates: start: 20080709
  25. SERENACE [Concomitant]
     Route: 048
     Dates: start: 20080711
  26. SOSEGON [Concomitant]
     Dosage: TOTAL DAILY DOSE: 50 MG  UNIT DOSE: 25 MG
     Route: 048
     Dates: start: 20080724
  27. DECADRON [Concomitant]
     Indication: HYPERTENSION
     Route: 048
     Dates: start: 20080728, end: 20080801
  28. SELTOUCH [Concomitant]
     Indication: BACK PAIN
     Route: 062
     Dates: start: 20080729
  29. GASCON [Concomitant]
     Dosage: TOTAL DAILY DOSE: 120 MG  UNIT DOSE: 40 MG
     Route: 048
     Dates: start: 20080730
  30. LECICARBON [Concomitant]
     Dosage: TOTAL DAILY DOSE: 1 DF  UNIT DOSE: 1 DF
     Route: 054
     Dates: start: 20080806, end: 20080806
  31. ZINC OXIDE [Concomitant]
     Route: 061
     Dates: start: 20080818
  32. MARZULENE S [Concomitant]
     Indication: GASTRITIS
     Route: 048
     Dates: start: 20080821, end: 20080821
  33. ADALAT [Concomitant]
     Dosage: UNIT DOSE: 10 MG
     Route: 048
     Dates: start: 20080619, end: 20080619
  34. RED CELLS CONCENTRATES-LEUKOCYTES REDUCED [Concomitant]
     Dosage: 2 UNITS
     Route: 042
     Dates: start: 20080620, end: 20080620
  35. RED CELLS CONCENTRATES-LEUKOCYTES REDUCED [Concomitant]
     Dosage: 2 UNITS
     Route: 042
     Dates: start: 20080625, end: 20080625
  36. RED CELLS CONCENTRATES-LEUKOCYTES REDUCED [Concomitant]
     Dosage: 2 UNITS
     Route: 042
     Dates: start: 20080623, end: 20080623

REACTIONS (5)
  - HYPERTENSION [None]
  - PALMAR-PLANTAR ERYTHRODYSAESTHESIA SYNDROME [None]
  - PLEURAL EFFUSION [None]
  - RECTAL ULCER [None]
  - RENAL CELL CARCINOMA [None]
